FAERS Safety Report 14486502 (Version 1)
Quarter: 2018Q1

REPORT INFORMATION
  Report Type: Spontaneous
  Country: US (occurrence: US)
  Receive Date: 20180203
  Receipt Date: 20180203
  Transmission Date: 20180509
  Serious: Yes (Other)
  Sender: FDA-Public Use
  Company Number: None

PATIENT
  Age: 36 Year
  Sex: Female
  Weight: 92.25 kg

DRUGS (5)
  1. TAMIFLU [Suspect]
     Active Substance: OSELTAMIVIR PHOSPHATE
     Indication: INFLUENZA
     Dates: start: 20180127, end: 20180131
  2. PROBIOTIC [Concomitant]
     Active Substance: PROBIOTICS NOS
  3. BABY ASPIRIN [Concomitant]
     Active Substance: ASPIRIN
  4. PRENATAL [Concomitant]
     Active Substance: VITAMINS
  5. LOVENOX [Concomitant]
     Active Substance: ENOXAPARIN SODIUM

REACTIONS (5)
  - Insomnia [None]
  - Suicidal ideation [None]
  - Dyspnoea [None]
  - Panic attack [None]
  - Hallucination [None]

NARRATIVE: CASE EVENT DATE: 20180128
